FAERS Safety Report 8795740 (Version 1)
Quarter: 2012Q4

REPORT INFORMATION
  Report Type: 
  Country: CN (occurrence: CN)
  Receive Date: 20120919
  Receipt Date: 20120919
  Transmission Date: 20130627
  Serious: Yes (Other)
  Sender: FDA-Public Use
  Company Number: CN-PFIZER INC-2012224432

PATIENT
  Age: 58 Year
  Sex: Male
  Weight: 55 kg

DRUGS (1)
  1. TAZOCIN [Suspect]
     Indication: LUNG INFECTION
     Dosage: 4.5 g, twice daily
     Route: 041
     Dates: start: 20110719, end: 20110729

REACTIONS (2)
  - Haemolysis [Recovered/Resolved]
  - Loss of consciousness [Recovered/Resolved]
